FAERS Safety Report 16568660 (Version 2)
Quarter: 2019Q3

REPORT INFORMATION
  Report Type: Report from Study
  Country: None (occurrence: US)
  Receive Date: 20190713
  Receipt Date: 20190715
  Transmission Date: 20191004
  Serious: Yes (Death)
  Sender: FDA-Public Use
  Company Number: US-ABBVIE-19K-163-2850655-00

PATIENT
  Age: 39 Year
  Sex: Male

DRUGS (4)
  1. VENCLEXTA [Suspect]
     Active Substance: VENETOCLAX
     Indication: ACUTE LYMPHOCYTIC LEUKAEMIA RECURRENT
     Dosage: 10MG-50MG-100MG-28 DAY STARTING PACK?WEEK 1
     Route: 048
     Dates: start: 201808, end: 2018
  2. VENCLEXTA [Suspect]
     Active Substance: VENETOCLAX
     Dosage: 10MG-50MG-100MG-28 DAY STARTING PACK?WEEK 3
     Route: 048
     Dates: start: 2018, end: 2018
  3. VENCLEXTA [Suspect]
     Active Substance: VENETOCLAX
     Dosage: 10MG-50MG-100MG-28 DAY STARTING PACK?WEEK 2
     Route: 048
     Dates: start: 2018, end: 2018
  4. VENCLEXTA [Suspect]
     Active Substance: VENETOCLAX
     Dosage: 10MG-50MG-100MG-28 DAY STARTING PACK?WEEK 4 AS DIRECTED WITH FOOD
     Route: 048
     Dates: start: 2018

REACTIONS (2)
  - Death [Fatal]
  - Intentional product use issue [Unknown]

NARRATIVE: CASE EVENT DATE: 20190105
